FAERS Safety Report 8982528 (Version 1)
Quarter: 2012Q4

REPORT INFORMATION
  Report Type: 
  Country: DE (occurrence: DE)
  Receive Date: 20121222
  Receipt Date: 20121222
  Transmission Date: 20130627
  Serious: Yes (Hospitalization)
  Sender: FDA-Public Use
  Company Number: DE-AMGEN-DEUSP2012068878

PATIENT
  Age: 65 Year
  Sex: Male
  Weight: 94 kg

DRUGS (17)
  1. MIMPARA [Suspect]
     Indication: HYPERPARATHYROIDISM SECONDARY
     Dosage: 60 mg, qd
     Route: 048
     Dates: start: 20110108, end: 20120912
  2. OSVAREN [Interacting]
  3. VITAMIN D [Interacting]
  4. DREISAVIT                          /00844801/ [Concomitant]
     Dosage: 1 DF, UNK
     Route: 048
     Dates: start: 200610, end: 201209
  5. MARCUMAR [Concomitant]
  6. FRAXIPARIN                         /00889603/ [Concomitant]
     Dosage: 0.8 ml, UNK
  7. DIGIMERCK [Concomitant]
     Dosage: 0.1 UNK, qd
  8. FUROSEMID                          /00032601/ [Concomitant]
     Dosage: 0.5 DF, bid
  9. BISOPROLOL [Concomitant]
     Dosage: 0.5 DF, UNK
  10. RAMIPRIL AL [Concomitant]
     Dosage: 5 mg, qd
  11. INEGY [Concomitant]
     Dosage: 1 DF, UNK
  12. RENVELA [Concomitant]
     Dosage: 1600 mg, tid
  13. ALLOPURINOL [Concomitant]
     Dosage: 100 mg, UNK
  14. FERINJECT [Concomitant]
     Indication: DIALYSIS
     Dosage: 100 mg, UNK
     Route: 042
  15. ZEMPLAR [Concomitant]
     Dosage: 5 mug, UNK
     Route: 042
  16. DEKRISTOL [Concomitant]
     Dosage: 20000 UNK, UNK
     Route: 048
  17. BINOCRIT [Concomitant]
     Dosage: 4000 UNK, UNK
     Route: 042

REACTIONS (14)
  - Hypermagnesaemia [Unknown]
  - Arteriovenous fistula operation [Unknown]
  - Arterial stenosis [Unknown]
  - Peripheral arterial occlusive disease [Unknown]
  - Endocarditis [Unknown]
  - Necrosis [Unknown]
  - Gangrene [Unknown]
  - Skin ulcer [Unknown]
  - Sepsis [Unknown]
  - Device related infection [Unknown]
  - Clostridium difficile infection [Unknown]
  - Intervertebral discitis [Unknown]
  - Drug interaction [Unknown]
  - Type 1 diabetes mellitus [Unknown]
